FAERS Safety Report 19367480 (Version 1)
Quarter: 2021Q2

REPORT INFORMATION
  Report Type: Spontaneous
  Country: US (occurrence: US)
  Receive Date: 20210602
  Receipt Date: 20210602
  Transmission Date: 20210717
  Serious: No
  Sender: FDA-Public Use
  Company Number: US-ROCHE-2821274

PATIENT
  Sex: Male
  Weight: 66.74 kg

DRUGS (10)
  1. EVRYSDI [Suspect]
     Active Substance: RISDIPLAM
     Indication: SPINAL MUSCULAR ATROPHY
     Dosage: 60 MG/80 ML BOTTLE
     Route: 048
  2. L?CARNITINE [Concomitant]
     Active Substance: LEVOCARNITINE
  3. LISINOPRIL. [Concomitant]
     Active Substance: LISINOPRIL
     Indication: HYPERTENSION
     Route: 048
  4. ASPIRIN EC [Concomitant]
     Active Substance: ASPIRIN
  5. VITAMIN C [Concomitant]
     Active Substance: ASCORBIC ACID
  6. XALATAN [Concomitant]
     Active Substance: LATANOPROST
  7. TIMOLOL MALEATE. [Concomitant]
     Active Substance: TIMOLOL MALEATE
  8. VITAMIN E [Concomitant]
     Active Substance: .ALPHA.-TOCOPHEROL
  9. VITAMIN B12 [Concomitant]
     Active Substance: CYANOCOBALAMIN
  10. EVRYSDI [Suspect]
     Active Substance: RISDIPLAM
     Indication: MUSCLE ATROPHY
     Dosage: 60 MG/80 ML BOTTLE, LIQUID
     Route: 048

REACTIONS (3)
  - Product preparation issue [Unknown]
  - Product dose omission issue [Unknown]
  - No adverse event [Unknown]
